FAERS Safety Report 10688123 (Version 1)
Quarter: 2014Q4

REPORT INFORMATION
  Report Type: Spontaneous
  Country: FR (occurrence: None)
  Receive Date: 20141231
  Receipt Date: 20141231
  Transmission Date: 20150529
  Serious: Yes (Other)
  Sender: FDA-Public Use
  Company Number: NL01PV14.38236

PATIENT
  Sex: Male

DRUGS (1)
  1. ZOLPIDEM [Suspect]
     Active Substance: ZOLPIDEM\ZOLPIDEM TARTRATE
     Indication: WRONG DRUG ADMINISTERED
     Dosage: 8 DF
     Route: 048
     Dates: start: 20141216, end: 20141216

REACTIONS (7)
  - Confusional state [None]
  - Vomiting [None]
  - Wrong drug administered [None]
  - Dizziness [None]
  - Insomnia [None]
  - Medication error [None]
  - Accidental overdose [None]

NARRATIVE: CASE EVENT DATE: 20141216
